FAERS Safety Report 9153786 (Version 1)
Quarter: 2013Q1

REPORT INFORMATION
  Report Type: Spontaneous
  Country: ZA (occurrence: ZA)
  Receive Date: 20130311
  Receipt Date: 20130311
  Transmission Date: 20140127
  Serious: Yes (Hospitalization)
  Sender: FDA-Public Use
  Company Number: ZA-US-EMD SERONO, INC.-7198089

PATIENT
  Sex: Male

DRUGS (1)
  1. REBIF [Suspect]
     Indication: PRODUCT USED FOR UNKNOWN INDICATION
     Dates: start: 20111010

REACTIONS (5)
  - Secondary progressive multiple sclerosis [Unknown]
  - Muscular weakness [Unknown]
  - Vision blurred [Unknown]
  - Speech disorder [Unknown]
  - Asthenia [Unknown]
